FAERS Safety Report 5259641-4 (Version None)
Quarter: 2007Q1

REPORT INFORMATION
  Report Type: 
  Country: None (occurrence: None)
  Receive Date: 20070307
  Receipt Date: 20070307
  Transmission Date: 20070707
  Serious: Yes (Hospitalization, Other)
  Sender: FDA-Public Use
  Company Number: None

PATIENT
  Age: 39 Year
  Sex: Male
  Weight: 77.1115 kg

DRUGS (1)
  1. WELLBUTRIN [Suspect]
     Indication: DEPRESSION
     Dosage: 100 MG 3X A DAY   3X   PO  (DURATION: ABOUT A MONTH)
     Route: 048
     Dates: start: 20070202, end: 20070228

REACTIONS (2)
  - CONVULSION [None]
  - FACE INJURY [None]
